FAERS Safety Report 13201103 (Version 1)
Quarter: 2017Q1

REPORT INFORMATION
  Report Type: Spontaneous
  Country: US (occurrence: US)
  Receive Date: 20170208
  Receipt Date: 20170208
  Transmission Date: 20170428
  Serious: No
  Sender: FDA-Public Use
  Company Number: US-AMGEN-USASP2016063170

PATIENT
  Sex: Female

DRUGS (1)
  1. NEULASTA [Suspect]
     Active Substance: PEGFILGRASTIM
     Indication: PRODUCT USED FOR UNKNOWN INDICATION
     Dosage: UNK
     Route: 065

REACTIONS (11)
  - Dysgeusia [Unknown]
  - Fatigue [Unknown]
  - Back disorder [Unknown]
  - Bone pain [Unknown]
  - Headache [Unknown]
  - Asthenia [Unknown]
  - Constipation [Not Recovered/Not Resolved]
  - Chest pain [Recovered/Resolved]
  - Musculoskeletal discomfort [Unknown]
  - Abdominal pain upper [Unknown]
  - Dry mouth [Unknown]

NARRATIVE: CASE EVENT DATE: 201605
